FAERS Safety Report 8820838 (Version 1)
Quarter: 2012Q4

REPORT INFORMATION
  Report Type: 
  Country: US (occurrence: US)
  Receive Date: 20121002
  Receipt Date: 20121002
  Transmission Date: 20130627
  Serious: Yes (Hospitalization, Other)
  Sender: FDA-Public Use
  Company Number: US-ELI_LILLY_AND_COMPANY-US201209006318

PATIENT
  Age: 80 Year
  Sex: Female

DRUGS (1)
  1. HUMAN INSULIN [Suspect]
     Indication: DIABETES MELLITUS
     Dosage: UNK, unknown

REACTIONS (3)
  - Hip arthroplasty [Unknown]
  - Mobility decreased [Not Recovered/Not Resolved]
  - Diverticulitis [Not Recovered/Not Resolved]
